FAERS Safety Report 4463144-4 (Version None)
Quarter: 2004Q3

REPORT INFORMATION
  Report Type: 
  Country: None (occurrence: None)
  Receive Date: 20040928
  Receipt Date: 20040917
  Transmission Date: 20050211
  Serious: Yes (Other)
  Sender: FDA-Public Use
  Company Number: DE-AMGEN-UK091961

PATIENT
  Age: 40 Year
  Sex: Female

DRUGS (2)
  1. NEUPOGEN [Suspect]
     Indication: BLOOD STEM CELL HARVEST
     Dosage: 300 MCG, SC
     Route: 058
  2. CYCLOPHOSPHAMIDE [Concomitant]

REACTIONS (8)
  - C-REACTIVE PROTEIN INCREASED [None]
  - DYSPNOEA [None]
  - EYE SWELLING [None]
  - LARYNGEAL STENOSIS [None]
  - LEUKOCYTOSIS [None]
  - STRIDOR [None]
  - TRACHEAL STENOSIS [None]
  - VASCULITIS [None]
